FAERS Safety Report 14210882 (Version 2)
Quarter: 2018Q1

REPORT INFORMATION
  Report Type: Spontaneous
  Country: US (occurrence: US)
  Receive Date: 20171121
  Receipt Date: 20180118
  Transmission Date: 20180508
  Serious: Yes (Disabling, Other)
  Sender: FDA-Public Use
  Company Number: US-REGENERON PHARMACEUTICALS, INC.-2017-23321

PATIENT

DRUGS (3)
  1. EYLEA [Suspect]
     Active Substance: AFLIBERCEPT
     Indication: NEOVASCULAR AGE-RELATED MACULAR DEGENERATION
     Dosage: UNK,  6 INJECTIONS OD, 11 INJECTIONS IN OS
     Route: 031
  2. EYLEA [Suspect]
     Active Substance: AFLIBERCEPT
     Dosage: 2 MG, Q6-8 WEEKS, OU
     Route: 031
     Dates: start: 20170809
  3. EYLEA [Suspect]
     Active Substance: AFLIBERCEPT
     Dosage: 2 MG, LAST PRIOR TO EVENT, OU
     Route: 031
     Dates: start: 20170809, end: 20170809

REACTIONS (4)
  - Hordeolum [Recovered/Resolved]
  - Drug dose omission [Unknown]
  - Blindness unilateral [Recovered/Resolved]
  - Dry eye [Unknown]

NARRATIVE: CASE EVENT DATE: 20170916
